FAERS Safety Report 16863344 (Version 2)
Quarter: 2019Q4

REPORT INFORMATION
  Report Type: Spontaneous
  Country: US (occurrence: US)
  Receive Date: 20190927
  Receipt Date: 20191016
  Transmission Date: 20200122
  Serious: No
  Sender: FDA-Public Use
  Company Number: US-SA-2019SA265176

PATIENT
  Age: 64 Year
  Sex: Male

DRUGS (1)
  1. LANTUS SOLOSTAR [Suspect]
     Active Substance: INSULIN GLARGINE
     Indication: TYPE 2 DIABETES MELLITUS
     Dosage: 70 UNITS, 50 UNITS  IN THE AM, AT NIGHT
     Route: 065

REACTIONS (2)
  - Inappropriate schedule of product administration [Unknown]
  - Product packaging issue [Unknown]
